FAERS Safety Report 10182693 (Version 2)
Quarter: 2014Q3

REPORT INFORMATION
  Report Type: Spontaneous
  Country: US (occurrence: None)
  Receive Date: 20140516
  Receipt Date: 20140701
  Transmission Date: 20150326
  Serious: Yes (Other)
  Sender: FDA-Public Use
  Company Number: 2014050016

PATIENT
  Age: 70 Year
  Sex: Male
  Weight: 95.26 kg

DRUGS (6)
  1. LEVEMIR [Concomitant]
     Active Substance: INSULIN DETEMIR
  2. FISH OIL (FISH OIL) [Concomitant]
     Active Substance: FISH OIL
  3. MOXONIDINE (MOXONIDINE) [Concomitant]
  4. ALPROSTADIL. [Suspect]
     Active Substance: ALPROSTADIL
     Indication: ERECTILE DYSFUNCTION
     Route: 066
     Dates: start: 2014
  5. NOVOLOG [Concomitant]
     Active Substance: INSULIN ASPART
  6. ASPIRIN. [Concomitant]
     Active Substance: ASPIRIN

REACTIONS (5)
  - Urethral haemorrhage [None]
  - Penile haemorrhage [None]
  - Wrong technique in drug usage process [None]
  - Blood urine present [None]
  - Device difficult to use [None]

NARRATIVE: CASE EVENT DATE: 201404
